FAERS Safety Report 25437645 (Version 1)
Quarter: 2025Q2

REPORT INFORMATION
  Report Type: Spontaneous
  Country: US (occurrence: US)
  Receive Date: 20250616
  Receipt Date: 20250616
  Transmission Date: 20250717
  Serious: No
  Sender: AMGEN
  Company Number: US-AMGEN-USASP2025116558

PATIENT
  Sex: Male

DRUGS (1)
  1. AMJEVITA [Suspect]
     Active Substance: ADALIMUMAB-ATTO
     Indication: Arthritis
     Route: 065

REACTIONS (2)
  - Drug dose omission by device [Unknown]
  - Fatigue [Unknown]
